FAERS Safety Report 4515645-8 (Version None)
Quarter: 2004Q4

REPORT INFORMATION
  Report Type: 
  Country: None (occurrence: None)
  Receive Date: 20041126
  Receipt Date: 20041111
  Transmission Date: 20050328
  Serious: Yes (Other)
  Sender: FDA-Public Use
  Company Number: 2004094354

PATIENT
  Age: 51 Year
  Sex: Female
  Weight: 43.5 kg

DRUGS (8)
  1. PROVERA [Suspect]
     Indication: MENOPAUSE
     Dosage: 2.5 MG QD (2.5 MG, QD), ORAL
     Route: 048
     Dates: start: 20030930, end: 20040928
  2. ESTRADIOL [Suspect]
     Indication: MENOPAUSAL SYMPTOMS
     Dosage: (4.33 MG, TWICE A WEEK), TRANSDERMAL
     Route: 062
     Dates: start: 20030930, end: 20040928
  3. CEP/E GOLD (KAKKONTO EXTRACT: OTC DRUG FOR COMMON COLD) (HERBAL EXTRAC [Concomitant]
  4. ALLEGRA [Concomitant]
  5. NEO-MEDROL EE (FRADIOMYCIN SULFATE)(METHYLPREDNISOLONE ACETATE, NOMYCI [Concomitant]
  6. FLUMETHOLON (FLUOROMETHOLONE) [Concomitant]
  7. DAN RICH (ISOPROPAMIDE IODIDE: OTC DRUG FOR POLLINOSIS) (DIPHENYLPYRAL [Concomitant]
  8. ZYRTEC [Concomitant]

REACTIONS (1)
  - BREAST CANCER [None]
